FAERS Safety Report 6869630-1 (Version None)
Quarter: 2010Q3

REPORT INFORMATION
  Report Type: 
  Country: None (occurrence: None)
  Receive Date: 20100722
  Receipt Date: 20100708
  Transmission Date: 20110219
  Serious: Yes (Hospitalization)
  Sender: FDA-Public Use
  Company Number: FR-GENENTECH-304240

PATIENT
  Sex: Female

DRUGS (2)
  1. PLACEBO [Suspect]
     Indication: SJOGREN'S SYNDROME
     Dosage: 1000 MG, UNK
     Route: 042
     Dates: start: 20090828
  2. RITUXIMAB [Suspect]
     Indication: PRODUCT USED FOR UNKNOWN INDICATION
     Dosage: UNK
     Route: 065
     Dates: start: 20100520, end: 20100520

REACTIONS (1)
  - RENAL FAILURE [None]
